FAERS Safety Report 5676674-4 (Version None)
Quarter: 2008Q1

REPORT INFORMATION
  Report Type: 
  Country: None (occurrence: None)
  Receive Date: 20080318
  Receipt Date: 20080306
  Transmission Date: 20080703
  Serious: Yes (Hospitalization)
  Sender: FDA-Public Use
  Company Number: DK-1165486

PATIENT
  Age: 36 Year
  Sex: Female

DRUGS (2)
  1. TOBRADEX [Suspect]
     Indication: KERATITIS
     Dosage: 1 GTT PI QID;OPTHALMIC
     Route: 047
     Dates: start: 20080103, end: 20080109
  2. ULTRACORTENOL (PREDNISOLONE ACETATE) [Concomitant]

REACTIONS (4)
  - EYE IRRITATION [None]
  - EYE PAIN [None]
  - LACRIMATION DECREASED [None]
  - OCULAR HYPERAEMIA [None]
